FAERS Safety Report 5054068-2 (Version None)
Quarter: 2006Q3

REPORT INFORMATION
  Report Type: 
  Country: None (occurrence: None)
  Receive Date: 20060713
  Receipt Date: 20060629
  Transmission Date: 20061208
  Serious: Yes (Hospitalization)
  Sender: FDA-Public Use
  Company Number: 230008M06FRA

PATIENT
  Age: 36 Year
  Sex: Female

DRUGS (6)
  1. REBIF [Suspect]
     Indication: MULTIPLE SCLEROSIS
     Dosage: SEE IMAGE
     Dates: start: 20040901, end: 20050301
  2. REBIF [Suspect]
     Indication: MULTIPLE SCLEROSIS
     Dosage: SEE IMAGE
     Dates: start: 20050301, end: 20051214
  3. VENLAFAXINE HCL [Concomitant]
  4. CLONAZEPAM [Concomitant]
  5. ZOLPIDEM TARTRATE [Concomitant]
  6. ORAL CONTRACEPTIVE [Concomitant]

REACTIONS (10)
  - DRUG EXPOSURE DURING PREGNANCY [None]
  - FATIGUE [None]
  - IDIOPATHIC THROMBOCYTOPENIC PURPURA [None]
  - INJECTION SITE REACTION [None]
  - MULTIPLE SCLEROSIS RELAPSE [None]
  - PREGNANCY [None]
  - PREMATURE SEPARATION OF PLACENTA [None]
  - PROTEIN TOTAL INCREASED [None]
  - STRESS AT WORK [None]
  - VIRAL INFECTION [None]
